FAERS Safety Report 6572690-9 (Version None)
Quarter: 2010Q1

REPORT INFORMATION
  Report Type: 
  Country: None (occurrence: None)
  Receive Date: 20100205
  Receipt Date: 20100125
  Transmission Date: 20100710
  Serious: Yes (Death)
  Sender: FDA-Public Use
  Company Number: US-JNJFOC-20100202277

PATIENT
  Age: 12 Day
  Sex: Female

DRUGS (2)
  1. INFANT'S TYLENOL [Suspect]
     Route: 048
  2. INFANT'S TYLENOL [Suspect]
     Indication: DRUG USE FOR UNKNOWN INDICATION
     Route: 048

REACTIONS (3)
  - HEPATIC CONGESTION [None]
  - MENINGITIS [None]
  - OVERDOSE [None]
